FAERS Safety Report 13969405 (Version 1)
Quarter: 2017Q3

REPORT INFORMATION
  Report Type: Spontaneous
  Country: US (occurrence: US)
  Receive Date: 20170914
  Receipt Date: 20170914
  Transmission Date: 20171128
  Serious: Yes (Other)
  Sender: FDA-Public Use
  Company Number: US-ASTELLAS-2017US028265

PATIENT
  Sex: Male

DRUGS (7)
  1. TRELSTAR [Concomitant]
     Active Substance: TRIPTORELIN PAMOATE
     Indication: PRODUCT USED FOR UNKNOWN INDICATION
     Dosage: UNK UNK, UNKNOWN FREQ.
     Route: 065
  2. PHENERGAN [Concomitant]
     Active Substance: PROMETHAZINE HYDROCHLORIDE
     Indication: PRODUCT USED FOR UNKNOWN INDICATION
     Dosage: UNK UNK, UNKNOWN FREQ.
     Route: 065
  3. ONDANSETRON [Concomitant]
     Active Substance: ONDANSETRON
     Indication: PRODUCT USED FOR UNKNOWN INDICATION
     Dosage: UNK UNK, UNKNOWN FREQ.
     Route: 065
  4. POTASSIUM [Concomitant]
     Active Substance: POTASSIUM
     Indication: PRODUCT USED FOR UNKNOWN INDICATION
     Dosage: UNK UNK, UNKNOWN FREQ.
     Route: 065
  5. XTANDI [Suspect]
     Active Substance: ENZALUTAMIDE
     Indication: PROSTATE CANCER
     Route: 048
     Dates: start: 20161129
  6. XTANDI [Suspect]
     Active Substance: ENZALUTAMIDE
     Route: 048
     Dates: start: 20170625, end: 20170810
  7. ADVIL (MEFENAMIC ACID) [Concomitant]
     Active Substance: MEFENAMIC ACID
     Indication: PRODUCT USED FOR UNKNOWN INDICATION
     Dosage: UNK UNK, UNKNOWN FREQ.
     Route: 065

REACTIONS (14)
  - Nausea [Unknown]
  - Arthralgia [Recovering/Resolving]
  - Oedema peripheral [Recovered/Resolved]
  - Weight decreased [Recovering/Resolving]
  - Decreased appetite [Recovering/Resolving]
  - Flank pain [Unknown]
  - Pain in extremity [Recovering/Resolving]
  - Dizziness [Unknown]
  - Visual impairment [Unknown]
  - Fall [Unknown]
  - Neuralgia [Unknown]
  - Insomnia [Recovering/Resolving]
  - Back pain [Unknown]
  - Asthenia [Unknown]
